FAERS Safety Report 7938084-6 (Version None)
Quarter: 2011Q4

REPORT INFORMATION
  Report Type: 
  Country: None (occurrence: None)
  Receive Date: 20111123
  Receipt Date: 20111117
  Transmission Date: 20120403
  Serious: Yes (Other)
  Sender: FDA-Public Use
  Company Number: GB-GILEAD-2011-0047174

PATIENT
  Age: 43 Year
  Sex: Female

DRUGS (4)
  1. TENOFOVIR DISOPROXIL FUMARATE [Suspect]
     Indication: HIV INFECTION
     Dosage: 1 DF, BID
     Route: 048
  2. COMBIZAR [Suspect]
     Indication: HIV INFECTION
     Dosage: DOSAGE FORM: UNSPECIFIED
     Route: 048
  3. INTELENCE [Suspect]
     Indication: HIV INFECTION
     Dosage: 1 DF, BID
     Route: 048
  4. PREZISTA [Suspect]
     Indication: HIV INFECTION
     Dosage: 1 DF, BID
     Route: 048

REACTIONS (4)
  - SWELLING [None]
  - DYSPHAGIA [None]
  - NECROSIS [None]
  - TONSILLAR DISORDER [None]
